FAERS Safety Report 25918650 (Version 1)
Quarter: 2025Q4

REPORT INFORMATION
  Report Type: Spontaneous
  Country: GB (occurrence: GB)
  Receive Date: 20251014
  Receipt Date: 20251014
  Transmission Date: 20260117
  Serious: Yes (Other)
  Sender: RANBAXY
  Company Number: GB-SUN PHARMACEUTICAL INDUSTRIES LTD-2025R1-529550

PATIENT
  Age: 17 Year
  Sex: Male
  Weight: 62 kg

DRUGS (1)
  1. DUAC [Suspect]
     Active Substance: BENZOYL PEROXIDE\CLINDAMYCIN PHOSPHATE
     Indication: Acne
     Dosage: 60 MILLIGRAM, QD
     Route: 065

REACTIONS (3)
  - Swelling face [Recovering/Resolving]
  - Eyelid ptosis [Unknown]
  - Eyelid rash [Unknown]

NARRATIVE: CASE EVENT DATE: 20250916
